FAERS Safety Report 4489319-6 (Version None)
Quarter: 2004Q4

REPORT INFORMATION
  Report Type: 
  Country: None (occurrence: None)
  Receive Date: 20041026
  Receipt Date: 20041011
  Transmission Date: 20050328
  Serious: Yes (Hospitalization)
  Sender: FDA-Public Use
  Company Number: 2004-BP-09534AU

PATIENT
  Age: 60 Year
  Sex: Male

DRUGS (3)
  1. SPIRIVA [Suspect]
     Indication: RESPIRATORY DISORDER
     Dosage: 18 MCG (18 MCG, 18 MCG INHALED ONCE DAILY) IH
     Route: 055
     Dates: start: 20040510, end: 20040628
  2. SERETIDE [Concomitant]
  3. ATROVENT [Concomitant]

REACTIONS (2)
  - NEURALGIA [None]
  - VENTRICULAR FAILURE [None]
